FAERS Safety Report 9529573 (Version 1)
Quarter: 2013Q3

REPORT INFORMATION
  Report Type: Spontaneous
  Country: AT (occurrence: AT)
  Receive Date: 20130917
  Receipt Date: 20130917
  Transmission Date: 20140515
  Serious: Yes (Other)
  Sender: FDA-Public Use
  Company Number: PHHY2013AT102377

PATIENT
  Age: 79 Year
  Sex: Male
  Weight: 67 kg

DRUGS (6)
  1. TASIGNA [Suspect]
     Indication: CHRONIC MYELOID LEUKAEMIA
     Route: 048
     Dates: start: 2010
  2. TASIGNA [Suspect]
     Dosage: 600 MG, DAILY
     Route: 048
     Dates: start: 20120805, end: 20130911
  3. ASPIRIN [Concomitant]
     Indication: CORONARY ARTERY DISEASE
     Dosage: 100 MG, DAILY
     Dates: start: 20120803
  4. ASPIRIN [Concomitant]
     Indication: PULMONARY VASCULAR RESISTANCE ABNORMALITY
  5. ACEMIN [Concomitant]
     Indication: HYPERTENSION
     Dosage: 5 MG, DAILY
     Dates: start: 20120803
  6. SIMVASTATIN [Concomitant]
     Dosage: 20 MG, DAILY
     Route: 048

REACTIONS (4)
  - Peripheral arterial occlusive disease [Unknown]
  - Aortic stenosis [Unknown]
  - Coronary artery occlusion [Unknown]
  - Syncope [Recovered/Resolved]
